FAERS Safety Report 5069546-X (Version None)
Quarter: 2006Q3

REPORT INFORMATION
  Report Type: 
  Country: None (occurrence: None)
  Receive Date: 20060731
  Receipt Date: 20060718
  Transmission Date: 20061208
  Serious: Yes (Hospitalization)
  Sender: FDA-Public Use
  Company Number: A-JP2006-12254

PATIENT
  Age: 77 Year
  Sex: Female
  Weight: 45.9947 kg

DRUGS (17)
  1. TRACLEER [Suspect]
     Indication: PULMONARY HYPERTENSION
     Dosage: SEE IMAGE ORAL
     Route: 048
     Dates: start: 20060328, end: 20060403
  2. TRACLEER [Suspect]
     Indication: PULMONARY HYPERTENSION
     Dosage: SEE IMAGE ORAL
     Route: 048
     Dates: start: 20060401, end: 20060501
  3. TRACLEER [Suspect]
     Indication: PULMONARY HYPERTENSION
     Dosage: SEE IMAGE ORAL
     Route: 048
     Dates: start: 20060502, end: 20060508
  4. TRACLEER [Suspect]
     Indication: PULMONARY HYPERTENSION
     Dosage: SEE IMAGE ORAL
     Route: 048
     Dates: start: 20060509, end: 20060509
  5. USODEOXYCHOLIC ACID (URSODEOXYCHOLIC ACID) [Concomitant]
  6. ATORVASTATIN CALCIUM [Concomitant]
  7. TOCOPHERYL NICOTINATE (TOCOPHEROL NICOTINATE) [Concomitant]
  8. BERAPROST SODIUM (BERAPROST SODIUM) [Concomitant]
  9. ASPIRIN TAB [Concomitant]
  10. OXYGEN (OXYGEN) [Concomitant]
  11. FUROSEMIDE [Concomitant]
  12. SPIRONOLACTONE [Concomitant]
  13. ITOPRIDE HYDROCHLORIDE [Concomitant]
  14. FAMOTIDINE [Concomitant]
  15. SENNOSIDE (SENNOSIDE A) [Concomitant]
  16. DIAZEPAM [Concomitant]
  17. OXETHAZINE (OXETACAINE) [Concomitant]

REACTIONS (8)
  - ABDOMINAL PAIN UPPER [None]
  - ALANINE AMINOTRANSFERASE INCREASED [None]
  - ASPARTATE AMINOTRANSFERASE INCREASED [None]
  - BLOOD ALKALINE PHOSPHATASE INCREASED [None]
  - CRYPTOGENIC ORGANISING PNEUMONIA [None]
  - DECREASED APPETITE [None]
  - GAMMA-GLUTAMYLTRANSFERASE INCREASED [None]
  - PO2 DECREASED [None]
